FAERS Safety Report 9281453 (Version 1)
Quarter: 2013Q2

REPORT INFORMATION
  Report Type: Spontaneous
  Country: MX (occurrence: MX)
  Receive Date: 20130509
  Receipt Date: 20130509
  Transmission Date: 20140414
  Serious: Yes (Other)
  Sender: FDA-Public Use
  Company Number: MX-COVIDIEN/TYCO HEALTHCARE/MALLINCKRODT-T201301882

PATIENT
  Sex: Female

DRUGS (1)
  1. EXALGO EXTENDED RELEASE [Suspect]
     Indication: NEOPLASM MALIGNANT
     Dosage: 8 MG, UNK
     Route: 048

REACTIONS (3)
  - Delusion [Unknown]
  - Confusional state [Unknown]
  - Wrong technique in drug usage process [Unknown]
